FAERS Safety Report 8557413-6 (Version None)
Quarter: 2012Q3

REPORT INFORMATION
  Report Type: 
  Country: None (occurrence: None)
  Receive Date: 20120801
  Receipt Date: 20120725
  Transmission Date: 20120928
  Serious: Yes (Hospitalization)
  Sender: FDA-Public Use
  Company Number: DE-ABBOTT-12P-062-0944643-00

PATIENT
  Sex: Male
  Weight: 78 kg

DRUGS (3)
  1. HUMIRA [Suspect]
     Indication: ANKYLOSING SPONDYLITIS
     Route: 058
     Dates: start: 20080824, end: 20120501
  2. HUMIRA [Suspect]
     Route: 058
     Dates: start: 20120610
  3. ARCOXIA [Concomitant]
     Indication: PRODUCT USED FOR UNKNOWN INDICATION
     Route: 048

REACTIONS (5)
  - EYE PAIN [None]
  - VISUAL ACUITY REDUCED [None]
  - DIZZINESS [None]
  - MUSCLE SPASMS [None]
  - HEADACHE [None]
